FAERS Safety Report 9116485 (Version 2)
Quarter: 2013Q2

REPORT INFORMATION
  Report Type: Spontaneous
  Country: US (occurrence: US)
  Receive Date: 20130225
  Receipt Date: 20130430
  Transmission Date: 20140414
  Serious: No
  Sender: FDA-Public Use
  Company Number: US-009507513-1302USA009245

PATIENT
  Age: 57 Year
  Sex: Male

DRUGS (2)
  1. AZASITE [Suspect]
     Indication: DRY EYE
     Dosage: ONE DROP IN EACH EYE ONCE A DAY FOR 30 DAYS
     Route: 047
     Dates: start: 20130201, end: 201303
  2. AZASITE [Suspect]
     Indication: BLEPHARITIS

REACTIONS (3)
  - Drug dose omission [Unknown]
  - Product quality issue [Unknown]
  - No adverse event [Unknown]
